FAERS Safety Report 10158401 (Version 3)
Quarter: 2014Q3

REPORT INFORMATION
  Report Type: Spontaneous
  Country: DK (occurrence: DK)
  Receive Date: 20140507
  Receipt Date: 20140924
  Transmission Date: 20150326
  Serious: Yes (Life-Threatening, Hospitalization, Other)
  Sender: FDA-Public Use
  Company Number: PHHY2014DK049721

PATIENT
  Sex: Female

DRUGS (3)
  1. ULTIBRO BREEZHALER [Suspect]
     Active Substance: GLYCOPYRRONIUM\INDACATEROL
     Indication: CHRONIC OBSTRUCTIVE PULMONARY DISEASE
     Dosage: UNK UKN, UNK
     Route: 055
     Dates: start: 20140310, end: 20140417
  2. AMLODIPINE [Concomitant]
     Active Substance: AMLODIPINE BESYLATE
  3. SIMVASTATIN. [Concomitant]
     Active Substance: SIMVASTATIN

REACTIONS (11)
  - Dyspnoea [Unknown]
  - Memory impairment [Not Recovered/Not Resolved]
  - Yellow skin [Recovered/Resolved]
  - Brain injury [Unknown]
  - Tongue discolouration [Recovered/Resolved]
  - Restlessness [Recovered/Resolved]
  - Cardiac arrest [Recovered/Resolved]
  - Wheezing [Unknown]
  - Myocardial infarction [Unknown]
  - Hypopnoea [Unknown]
  - Disorientation [Not Recovered/Not Resolved]

NARRATIVE: CASE EVENT DATE: 20140417
